FAERS Safety Report 6661987-X (Version None)
Quarter: 2010Q1

REPORT INFORMATION
  Report Type: 
  Country: None (occurrence: None)
  Receive Date: 20100331
  Receipt Date: 20091119
  Transmission Date: 20100710
  Serious: No
  Sender: FDA-Public Use
  Company Number: US-BRISTOL-MYERS SQUIBB COMPANY-14863344

PATIENT
  Sex: Male

DRUGS (5)
  1. ERBITUX [Suspect]
     Indication: HEAD AND NECK CANCER
  2. PLATINUM [Suspect]
     Indication: HEAD AND NECK CANCER
  3. TAXOTERE [Suspect]
     Indication: HEAD AND NECK CANCER
  4. RADIATION THERAPY [Suspect]
     Indication: HEAD AND NECK CANCER
  5. FLUOROURACIL [Suspect]
     Indication: HEAD AND NECK CANCER

REACTIONS (2)
  - NEUROPATHY PERIPHERAL [None]
  - SKIN CHAPPED [None]
